FAERS Safety Report 5923206-9 (Version None)
Quarter: 2008Q4

REPORT INFORMATION
  Report Type: 
  Country: None (occurrence: None)
  Receive Date: 20081020
  Receipt Date: 20081013
  Transmission Date: 20090506
  Serious: Yes (Other)
  Sender: FDA-Public Use
  Company Number: GB-JNJFOC-20080903785

PATIENT
  Age: 59 Year
  Sex: Female

DRUGS (2)
  1. RISPERDAL [Suspect]
     Indication: BIPOLAR DISORDER
     Route: 048
  2. DOTHIEPIN [Concomitant]
     Indication: BIPOLAR DISORDER
     Route: 065

REACTIONS (3)
  - BLOOD PROLACTIN INCREASED [None]
  - BREAST CANCER [None]
  - GALACTORRHOEA [None]
